FAERS Safety Report 19249674 (Version 2)
Quarter: 2021Q2

REPORT INFORMATION
  Report Type: Spontaneous
  Country: US (occurrence: US)
  Receive Date: 20210512
  Receipt Date: 20210601
  Transmission Date: 20210717
  Serious: No
  Sender: FDA-Public Use
  Company Number: US-VERTEX PHARMACEUTICALS-2021-007203

PATIENT
  Age: 72 Year
  Sex: Female

DRUGS (1)
  1. TRIKAFTA [Suspect]
     Active Substance: ELEXACAFTOR\IVACAFTOR\TEZACAFTOR
     Indication: CYSTIC FIBROSIS
     Dosage: (100MG ELEXA/50MG TEZA/75MG IVA AND 150MG IVA) USUAL DOSE
     Route: 048
     Dates: start: 202012

REACTIONS (3)
  - Insomnia [Not Recovered/Not Resolved]
  - Hot flush [Unknown]
  - Cataract [Not Recovered/Not Resolved]
